FAERS Safety Report 6071691-7 (Version None)
Quarter: 2009Q1

REPORT INFORMATION
  Report Type: 
  Country: None (occurrence: None)
  Receive Date: 20090209
  Receipt Date: 20090209
  Transmission Date: 20090719
  Serious: Yes (Hospitalization)
  Sender: FDA-Public Use
  Company Number: None

PATIENT
  Age: 68 Year
  Sex: Male
  Weight: 114.3 kg

DRUGS (2)
  1. CEFTRIAXONE AND DEXTROSE IN DUPLEX CONTAINER [Suspect]
     Indication: CELLULITIS
  2. CEFTRIAXONE [Suspect]
     Indication: CELLULITIS

REACTIONS (2)
  - CLOSTRIDIAL INFECTION [None]
  - RENAL FAILURE ACUTE [None]
